FAERS Safety Report 14735089 (Version 8)
Quarter: 2020Q4

REPORT INFORMATION
  Report Type: Spontaneous
  Country: DE (occurrence: DE)
  Receive Date: 20180409
  Receipt Date: 20201009
  Transmission Date: 20210113
  Serious: Yes (Hospitalization)
  Sender: FDA-Public Use
  Company Number: PHHY2018DE060983

PATIENT
  Age: 83 Year
  Sex: Female
  Weight: 97 kg

DRUGS (19)
  1. LERCANIDIPINE [Concomitant]
     Active Substance: LERCANIDIPINE
     Indication: HYPERTENSION
     Dosage: 40 MG, QD
     Route: 048
     Dates: start: 2012, end: 20180107
  2. MONOPROST [Concomitant]
     Active Substance: LATANOPROST
     Indication: GLAUCOMA
     Dosage: 50 UG, QD (50 MICROGRAM)
     Route: 061
     Dates: start: 2016
  3. TELMISARTAN. [Concomitant]
     Active Substance: TELMISARTAN
     Indication: HYPERTENSION
     Dosage: 60 MG, QD (60 MILLIGRAM)
     Route: 048
     Dates: start: 2012
  4. SIMVAHEXAL [Concomitant]
     Active Substance: SIMVASTATIN
     Indication: HYPERLIPIDAEMIA
     Dosage: 10 MG, QD
     Route: 048
     Dates: start: 2000
  5. CLOPIDOGREL [Concomitant]
     Active Substance: CLOPIDOGREL BISULFATE
     Indication: PROPHYLAXIS
     Dosage: 75 MG, QD (75 MILLIGRAM)
     Route: 048
     Dates: start: 20180213, end: 2018
  6. ZOMETA [Concomitant]
     Active Substance: ZOLEDRONIC ACID
     Indication: PROPHYLAXIS
     Dosage: 4 MG, QMO
     Route: 041
     Dates: start: 20180321
  7. DEXAMETHASONE. [Suspect]
     Active Substance: DEXAMETHASONE
     Dosage: 20 MG
     Route: 065
     Dates: start: 20180129
  8. ASA [Concomitant]
     Active Substance: ASPIRIN
     Dosage: 100 MG, QD (100 MILLIGRAM)
     Route: 065
  9. AUGENTROPFEN [Concomitant]
     Indication: GLAUCOMA
     Dosage: UNK
     Route: 065
  10. DEXAMETHASONE. [Suspect]
     Active Substance: DEXAMETHASONE
     Indication: PLASMA CELL MYELOMA
     Dosage: 20 MG, QW (20 MILLIGRAM)
     Route: 065
  11. ASA [Concomitant]
     Active Substance: ASPIRIN
     Indication: PROPHYLAXIS
     Dosage: 150 MG, QD
     Route: 048
     Dates: start: 2012, end: 20180107
  12. DEXAMETHASONE. [Suspect]
     Active Substance: DEXAMETHASONE
     Dosage: 20 MG
     Route: 065
     Dates: start: 20180108, end: 20180122
  13. REVLIMID [Suspect]
     Active Substance: LENALIDOMIDE
     Indication: PLASMA CELL MYELOMA
     Dosage: 25 MG, QD (25 MILLIGRAM)
     Route: 048
     Dates: start: 20180108, end: 20180128
  14. REVLIMID [Suspect]
     Active Substance: LENALIDOMIDE
     Dosage: 25 MG (25 MILLIGRAM)
     Route: 048
     Dates: start: 20180205
  15. CLEXANE [Concomitant]
     Active Substance: ENOXAPARIN SODIUM
     Indication: PROPHYLAXIS
     Dosage: 4000 IU (INTERNATIONAL UNIT)
     Route: 058
     Dates: start: 20180108
  16. AZARGA [Concomitant]
     Active Substance: BRINZOLAMIDE\TIMOLOL MALEATE
     Indication: GLAUCOMA
     Dosage: 20 MG, QD (20 MILLIGRAM)
     Route: 061
     Dates: start: 2012
  17. ASA [Concomitant]
     Active Substance: ASPIRIN
     Indication: ACUTE MYOCARDIAL INFARCTION
     Dosage: 100 MG, QD
     Route: 065
     Dates: start: 20180108
  18. METOHEXAL [Concomitant]
     Active Substance: METOPROLOL
     Indication: HYPERTENSION
     Dosage: 47.5 MG, QD (47.5 MILLIGRAM)
     Route: 048
     Dates: start: 2012
  19. DABIGATRAN [Concomitant]
     Active Substance: DABIGATRAN
     Indication: PROPHYLAXIS
     Dosage: 110 MG, QD
     Route: 048
     Dates: start: 20180213, end: 2018

REACTIONS (3)
  - Deep vein thrombosis [Not Recovered/Not Resolved]
  - Acute myocardial infarction [Recovered/Resolved]
  - Pulmonary embolism [Recovered/Resolved]

NARRATIVE: CASE EVENT DATE: 20180123
